FAERS Safety Report 10252656 (Version 2)
Quarter: 2014Q2

REPORT INFORMATION
  Report Type: Spontaneous
  Country: US (occurrence: US)
  Receive Date: 20140623
  Receipt Date: 20140623
  Transmission Date: 20141212
  Serious: Yes (Hospitalization)
  Sender: FDA-Public Use
  Company Number: US-JNJFOC-20140510017

PATIENT
  Age: 89 Year
  Sex: Female
  Weight: 47.17 kg

DRUGS (1)
  1. XARELTO [Suspect]
     Indication: DEEP VEIN THROMBOSIS
     Route: 048
     Dates: start: 20140103, end: 20140221

REACTIONS (3)
  - Small intestinal haemorrhage [Recovered/Resolved with Sequelae]
  - Gastritis [Unknown]
  - Oesophagitis [Unknown]
